FAERS Safety Report 23606726 (Version 1)
Quarter: 2024Q1

REPORT INFORMATION
  Report Type: Report from Study
  Country: EG (occurrence: EG)
  Receive Date: 20240307
  Receipt Date: 20240307
  Transmission Date: 20240410
  Serious: No
  Sender: FDA-Public Use
  Company Number: EG-SANDOZ-SDZ2024EG023224

PATIENT
  Age: 7 Year
  Sex: Female
  Weight: 17 kg

DRUGS (1)
  1. OMNITROPE [Suspect]
     Active Substance: SOMATROPIN
     Indication: Growth hormone deficiency
     Dosage: STARTED WITH 1.5 TO 0.7 MG/DAY DUE TO NORMAL GROWTH RATE AS PER THE REPORTER.
     Route: 058
     Dates: start: 20221023, end: 20240301

REACTIONS (3)
  - Medication error [Not Recovered/Not Resolved]
  - Product dose omission issue [Not Recovered/Not Resolved]
  - Device mechanical issue [Unknown]

NARRATIVE: CASE EVENT DATE: 20240301
